FAERS Safety Report 23644321 (Version 2)
Quarter: 2024Q1

REPORT INFORMATION
  Report Type: Spontaneous
  Country: RO (occurrence: RO)
  Receive Date: 20240318
  Receipt Date: 20240322
  Transmission Date: 20240410
  Serious: Yes (Other)
  Sender: FDA-Public Use
  Company Number: RO-AstraZeneca-2024-159249

PATIENT
  Sex: Female

DRUGS (1)
  1. TRASTUZUMAB DERUXTECAN [Suspect]
     Active Substance: TRASTUZUMAB DERUXTECAN
     Indication: Breast cancer
     Dosage: 5.4 MG/KG, ONCE EVERY 3 WK
     Route: 042
     Dates: start: 20230823, end: 20240215

REACTIONS (1)
  - Metastases to bone [Unknown]
